FAERS Safety Report 5493493-2 (Version None)
Quarter: 2007Q4

REPORT INFORMATION
  Report Type: 
  Country: None (occurrence: None)
  Receive Date: 20071023
  Receipt Date: 20071010
  Transmission Date: 20080405
  Serious: Yes (Hospitalization)
  Sender: FDA-Public Use
  Company Number: US-ELI_LILLY_AND_COMPANY-US200710003627

PATIENT
  Weight: 3.083 kg

DRUGS (6)
  1. HUMALOG [Suspect]
     Indication: GESTATIONAL DIABETES
     Route: 064
     Dates: start: 20070101, end: 20070606
  2. METHYLDOPA [Concomitant]
     Dosage: UNK, UNK
     Route: 064
  3. SYNTHROID [Concomitant]
     Dosage: UNK, UNK
     Route: 064
  4. PRENATAL VITAMINS                  /01549301/ [Concomitant]
     Route: 064
  5. CYTOTEC [Concomitant]
     Route: 064
     Dates: start: 20070605
  6. PITOCIN [Concomitant]
     Route: 064

REACTIONS (5)
  - BLOOD GLUCOSE DECREASED [None]
  - DRUG EXPOSURE DURING PREGNANCY [None]
  - DRUG EXPOSURE VIA BREAST MILK [None]
  - JAUNDICE [None]
  - PNEUMONIA [None]
